FAERS Safety Report 13017982 (Version 1)
Quarter: 2016Q4

REPORT INFORMATION
  Report Type: Report from Study
  Country: None (occurrence: NL)
  Receive Date: 20161212
  Receipt Date: 20161212
  Transmission Date: 20170207
  Serious: Yes (Other)
  Sender: FDA-Public Use
  Company Number: NL-ABBVIE-14P-114-1211869-00

PATIENT
  Sex: Female
  Weight: 78 kg

DRUGS (14)
  1. DEXAMETASON [Concomitant]
     Active Substance: DEXAMETHASONE
     Indication: BREAST CANCER FEMALE
     Route: 048
     Dates: start: 201312, end: 20140303
  2. LUCRIN DEPOT [Suspect]
     Active Substance: LEUPROLIDE ACETATE
     Indication: BREAST CANCER FEMALE
     Route: 058
     Dates: start: 20131219
  3. TAMOXIFEN [Concomitant]
     Active Substance: TAMOXIFEN
     Indication: BREAST CANCER FEMALE
     Route: 048
     Dates: start: 20131213
  4. PARACETAMOL [Concomitant]
     Active Substance: ACETAMINOPHEN
     Indication: PAIN
     Route: 048
     Dates: start: 201312
  5. OXYCODIN [Concomitant]
     Indication: PAIN
     Route: 048
     Dates: start: 201312
  6. OMEPRAZOL [Concomitant]
     Active Substance: OMEPRAZOLE
     Indication: PROPHYLAXIS
  7. OXYCODONE [Concomitant]
     Active Substance: OXYCODONE
  8. MACROGOL/SALTS POWDER FOR BEVERAGE [Concomitant]
     Indication: CONSTIPATION
     Route: 048
     Dates: start: 201312
  9. BISACODYL. [Concomitant]
     Active Substance: BISACODYL
     Indication: CONSTIPATION
     Dosage: EC
     Route: 048
     Dates: start: 201312
  10. CLONIDINE. [Concomitant]
     Active Substance: CLONIDINE
     Indication: HOT FLUSH
     Dosage: 2/2 TIMES DAILY
  11. OMEPRAZOL [Concomitant]
     Active Substance: OMEPRAZOLE
     Indication: GASTRIC DISORDER
     Dosage: EC
     Route: 048
     Dates: start: 201312
  12. OXYCODONE [Concomitant]
     Active Substance: OXYCODONE
     Indication: PRODUCT USED FOR UNKNOWN INDICATION
     Route: 048
  13. CAPECITABINE. [Concomitant]
     Active Substance: CAPECITABINE
     Indication: CHEMOTHERAPY
  14. OXYCODIN [Concomitant]
     Route: 048
     Dates: start: 201312

REACTIONS (4)
  - Hot flush [Not Recovered/Not Resolved]
  - Breast cancer metastatic [Not Recovered/Not Resolved]
  - Hyperhidrosis [Not Recovered/Not Resolved]
  - Poor quality sleep [Unknown]
